FAERS Safety Report 9995487 (Version 1)
Quarter: 2014Q1

REPORT INFORMATION
  Report Type: Spontaneous
  Country: US (occurrence: None)
  Receive Date: 20140307
  Receipt Date: 20140307
  Transmission Date: 20141002
  Serious: Yes (Other)
  Sender: FDA-Public Use
  Company Number: None

PATIENT
  Age: 47 Year
  Sex: Male
  Weight: 80.74 kg

DRUGS (1)
  1. NAPROXEN [Suspect]
     Indication: PAIN
     Route: 048
     Dates: start: 20140128, end: 20140204

REACTIONS (4)
  - Pruritus [None]
  - Rash [None]
  - Swelling [None]
  - Erythema [None]
